FAERS Safety Report 17961992 (Version 4)
Quarter: 2020Q3

REPORT INFORMATION
  Report Type: Spontaneous
  Country: US (occurrence: US)
  Receive Date: 20200630
  Receipt Date: 20200904
  Transmission Date: 20201103
  Serious: No
  Sender: FDA-Public Use
  Company Number: US-GLAXOSMITHKLINE-US2020AMR114169

PATIENT
  Sex: Female

DRUGS (2)
  1. ZEJULA [Suspect]
     Active Substance: NIRAPARIB
     Indication: OVARIAN CANCER
     Dosage: 200 MG
     Dates: start: 20200618
  2. ZEJULA [Suspect]
     Active Substance: NIRAPARIB
     Dosage: 200 MG, QD
     Route: 048

REACTIONS (13)
  - Oxygen saturation decreased [Unknown]
  - Nail discolouration [Unknown]
  - White blood cell count decreased [Unknown]
  - Poor quality sleep [Recovering/Resolving]
  - Nausea [Unknown]
  - Temperature intolerance [Unknown]
  - Dizziness [Unknown]
  - Blood creatinine increased [Recovering/Resolving]
  - Dyspnoea [Unknown]
  - Feeling hot [Unknown]
  - Rash [Recovered/Resolved]
  - Dehydration [Unknown]
  - Haemoglobin decreased [Unknown]
